FAERS Safety Report 6309124-5 (Version None)
Quarter: 2009Q3

REPORT INFORMATION
  Report Type: 
  Country: None (occurrence: None)
  Receive Date: 20090814
  Receipt Date: 20090805
  Transmission Date: 20100115
  Serious: Yes (Hospitalization)
  Sender: FDA-Public Use
  Company Number: DE-NAPPMUNDI-DEU-2009-0005345

PATIENT
  Sex: Female

DRUGS (1)
  1. PALLADON RETARD 8 MG [Suspect]
     Indication: BACK PAIN
     Dosage: 8 MG, BID
     Route: 048

REACTIONS (2)
  - DYSPNOEA EXERTIONAL [None]
  - EPILEPSY [None]
